FAERS Safety Report 24205015 (Version 1)
Quarter: 2024Q3

REPORT INFORMATION
  Report Type: Spontaneous
  Country: US (occurrence: US)
  Receive Date: 20240813
  Receipt Date: 20240813
  Transmission Date: 20241016
  Serious: No
  Sender: PRASCO
  Company Number: US-Prasco Laboratories-PRAS20241086

PATIENT
  Age: 81 Year
  Sex: Female

DRUGS (1)
  1. ESTRADIOL [Suspect]
     Active Substance: ESTRADIOL
     Indication: Urinary tract infection
     Dosage: APPLIES THE SIZE OF A PEA ON THE OUTSIDE AND SLIGHTLY INSIDE, 3X/ WEEK, SOMETIMES 2X/ A WK
     Route: 067
     Dates: start: 202407

REACTIONS (3)
  - Blood glucose increased [Unknown]
  - Off label use [None]
  - Product dose omission issue [None]

NARRATIVE: CASE EVENT DATE: 20240701
